FAERS Safety Report 5227217-0 (Version None)
Quarter: 2007Q1

REPORT INFORMATION
  Report Type: 
  Country: None (occurrence: None)
  Receive Date: 20070202
  Receipt Date: 20070125
  Transmission Date: 20070707
  Serious: Yes (Hospitalization)
  Sender: FDA-Public Use
  Company Number: FR-GLAXOSMITHKLINE-B0455629A

PATIENT
  Age: 67 Year
  Sex: Male
  Weight: 130 kg

DRUGS (5)
  1. AVANDAMET [Suspect]
     Route: 048
     Dates: start: 20060701, end: 20070115
  2. HYTACAND [Suspect]
     Route: 048
     Dates: start: 20020101
  3. DIOSMINE [Suspect]
     Dosage: 600MG PER DAY
     Route: 048
     Dates: start: 20060101
  4. INIPOMP [Suspect]
     Route: 048
     Dates: start: 20060101
  5. ALFUZOSINE [Suspect]
     Dosage: 10MG PER DAY
     Route: 048
     Dates: start: 20060101

REACTIONS (4)
  - CARDIAC FAILURE [None]
  - DYSPNOEA [None]
  - ERYSIPELAS [None]
  - OEDEMA PERIPHERAL [None]
